FAERS Safety Report 24033872 (Version 2)
Quarter: 2024Q4

REPORT INFORMATION
  Report Type: Spontaneous
  Country: US (occurrence: US)
  Receive Date: 20240701
  Receipt Date: 20241008
  Transmission Date: 20250115
  Serious: No
  Sender: Pyros Pharmaceuticals
  Company Number: US-PYROS PHARMACEUTICALS, INC-2024-PYROS-US000026

PATIENT
  Age: 0 Year
  Sex: Male
  Weight: 10.9 kg

DRUGS (16)
  1. VIGPODER [Suspect]
     Active Substance: VIGABATRIN
     Indication: Infantile spasms
     Dosage: 225 MG (4.5 ML), BID
     Route: 048
     Dates: start: 20240524, end: 20240526
  2. VIGPODER [Suspect]
     Active Substance: VIGABATRIN
     Dosage: 340 MG (6.8 ML), BID
     Route: 048
     Dates: start: 20240527, end: 20240529
  3. VIGPODER [Suspect]
     Active Substance: VIGABATRIN
     Dosage: 455 MG (9.1 ML), BID
     Route: 048
     Dates: start: 20240530, end: 20240601
  4. VIGPODER [Suspect]
     Active Substance: VIGABATRIN
     Dosage: 565 MG (11.3 ML) BID
     Route: 048
     Dates: start: 20240602, end: 20240604
  5. VIGPODER [Suspect]
     Active Substance: VIGABATRIN
     Dosage: 680 MG (13.6 ML), BID
     Route: 048
     Dates: start: 20240605
  6. VIGPODER [Suspect]
     Active Substance: VIGABATRIN
     Dosage: 725MG (14.5 ML), BID
     Route: 048
  7. VIGPODER [Suspect]
     Active Substance: VIGABATRIN
     Dosage: 825 MG (16.5 ML), BID
     Route: 048
  8. KEPPRA [Concomitant]
     Active Substance: LEVETIRACETAM
     Indication: Seizure
     Dosage: 250 MG
     Route: 048
     Dates: start: 202312
  9. CLONAZEPAM [Concomitant]
     Active Substance: CLONAZEPAM
     Indication: Infantile spasms
     Dosage: 1.25 ML, DAILY
     Route: 048
     Dates: start: 202404, end: 2024
  10. VITAMIN B6 [Concomitant]
     Active Substance: PYRIDOXINE HYDROCHLORIDE
     Indication: Infantile spasms
     Dosage: 1.25 ML, DAILY
     Route: 048
     Dates: start: 202404
  11. NYSTATIN [Concomitant]
     Active Substance: NYSTATIN
     Indication: Rash
     Dosage: UNK, PRN
     Route: 061
     Dates: start: 20240401
  12. CETIRIZINE [Concomitant]
     Active Substance: CETIRIZINE HYDROCHLORIDE
     Indication: Hypersensitivity
     Dosage: 2.5 ML (2.5 MG), PRN
     Route: 048
     Dates: start: 202404
  13. NEUPOGEN [Concomitant]
     Active Substance: FILGRASTIM
     Indication: Neutropenia
     Dosage: 42 UG, DAILY AS NEEDED AFTER CHEMOTHERAPY
     Route: 058
  14. NEUPOGEN [Concomitant]
     Active Substance: FILGRASTIM
     Dosage: 300 UG, DAILY
     Dates: start: 20240101
  15. LIDOCAINE [Concomitant]
     Active Substance: LIDOCAINE
     Indication: Venipuncture
     Dosage: UNK, PRN
     Route: 061
  16. MIRALAX [Concomitant]
     Active Substance: POLYETHYLENE GLYCOL 3350
     Indication: Product used for unknown indication

REACTIONS (2)
  - Somnolence [Recovering/Resolving]
  - Prescribed overdose [Unknown]

NARRATIVE: CASE EVENT DATE: 20240525
